FAERS Safety Report 10521627 (Version 2)
Quarter: 2014Q4

REPORT INFORMATION
  Report Type: Spontaneous
  Country: US (occurrence: None)
  Receive Date: 20141014
  Receipt Date: 20141110
  Transmission Date: 20150528
  Serious: Yes (Death, Other)
  Sender: FDA-Public Use
  Company Number: 2014-20462

PATIENT
  Age: 88 Year
  Sex: Female

DRUGS (8)
  1. TOPROL (METOPROLOL SUCCINATE) [Concomitant]
  2. ZESTRIL (LISINOPRIL) [Concomitant]
  3. FISH OIL (FISH OIL) [Concomitant]
     Active Substance: FISH OIL
  4. PLAVIX (CLOPOGREL BISULFATE) [Concomitant]
  5. EYLEA [Suspect]
     Active Substance: AFLIBERCEPT
     Indication: RETINAL VEIN OCCLUSION
     Dosage: 2 MG MILLIGRAM(S), MONTHLY, INTRAOCULAR
     Route: 031
     Dates: start: 20140718, end: 20140718
  6. PATANOL (OLOPATADINE HYDROCHLORIDE) [Concomitant]
  7. LUMIGAN (BIMATOPROST) [Concomitant]
  8. EYLEA [Suspect]
     Active Substance: AFLIBERCEPT
     Indication: MACULAR DEGENERATION
     Dosage: 2 MG MILLIGRAM(S), MONTHLY, INTRAOCULAR
     Route: 031
     Dates: start: 20140718, end: 20140718

REACTIONS (1)
  - Death [None]

NARRATIVE: CASE EVENT DATE: 20140811
